FAERS Safety Report 5495370-X (Version None)
Quarter: 2007Q4

REPORT INFORMATION
  Report Type: 
  Country: None (occurrence: None)
  Receive Date: 20071024
  Receipt Date: 20071012
  Transmission Date: 20080405
  Serious: Yes (Other)
  Sender: FDA-Public Use
  Company Number: US-PFIZER INC-2007086991

PATIENT
  Sex: Female
  Weight: 72.727 kg

DRUGS (3)
  1. CHANTIX [Suspect]
     Indication: SMOKING CESSATION THERAPY
     Route: 048
     Dates: start: 20070813, end: 20070901
  2. LAMICTAL [Concomitant]
     Route: 048
  3. KLONOPIN [Concomitant]
     Route: 048

REACTIONS (4)
  - FEELING ABNORMAL [None]
  - FRUSTRATION [None]
  - INSOMNIA [None]
  - NIGHTMARE [None]
